FAERS Safety Report 7415584-9 (Version None)
Quarter: 2011Q2

REPORT INFORMATION
  Report Type: 
  Country: None (occurrence: None)
  Receive Date: 20110414
  Receipt Date: 20110405
  Transmission Date: 20111010
  Serious: Yes (Hospitalization)
  Sender: FDA-Public Use
  Company Number: US-SANOFI-AVENTIS-2011SA021428

PATIENT
  Age: 87 Year
  Sex: Male

DRUGS (2)
  1. OPTICLICK [Suspect]
     Dates: start: 20050101
  2. LANTUS [Suspect]
     Indication: TYPE 2 DIABETES MELLITUS
     Dosage: DOSE:20 UNIT(S)
     Route: 058
     Dates: start: 20050101

REACTIONS (2)
  - WAIST CIRCUMFERENCE INCREASED [None]
  - COMA [None]
